FAERS Safety Report 17702855 (Version 1)
Quarter: 2020Q2

REPORT INFORMATION
  Report Type: Spontaneous
  Country: CA (occurrence: CA)
  Receive Date: 20200424
  Receipt Date: 20200424
  Transmission Date: 20200714
  Serious: No
  Sender: FDA-Public Use
  Company Number: CA-SA-2020SA102454

PATIENT
  Sex: Female

DRUGS (5)
  1. HYDROXYCHLOROQUINE [Suspect]
     Active Substance: HYDROXYCHLOROQUINE
     Dosage: 300 MG
     Route: 065
     Dates: start: 19930501, end: 19960901
  2. LEFLUNOMIDE. [Suspect]
     Active Substance: LEFLUNOMIDE
     Dosage: 20 MG, QD
     Route: 065
     Dates: start: 20021101, end: 20030801
  3. METHOTREXATE. [Suspect]
     Active Substance: METHOTREXATE
     Indication: RHEUMATOID ARTHRITIS
     Dosage: , 20-12.5 MG;UNK
     Route: 065
     Dates: start: 19921001, end: 19930315
  4. SULFASALAZINE. [Suspect]
     Active Substance: SULFASALAZINE
     Dosage: 2 G
     Route: 065
     Dates: start: 19930501, end: 19960901
  5. LEFLUNOMIDE. [Suspect]
     Active Substance: LEFLUNOMIDE
     Dosage: 10 MG, QD
     Route: 065
     Dates: start: 20110501, end: 20120505

REACTIONS (3)
  - Hepatic enzyme increased [Unknown]
  - Drug ineffective [Unknown]
  - Pregnancy [Unknown]
